FAERS Safety Report 6684509-6 (Version None)
Quarter: 2010Q2

REPORT INFORMATION
  Report Type: 
  Country: None (occurrence: None)
  Receive Date: 20100416
  Receipt Date: 20100412
  Transmission Date: 20101027
  Serious: Yes (Hospitalization, Other)
  Sender: FDA-Public Use
  Company Number: US-BRISTOL-MYERS SQUIBB COMPANY-15043656

PATIENT
  Age: 69 Year
  Sex: Female
  Weight: 83 kg

DRUGS (5)
  1. AVAPRO [Suspect]
     Indication: HYPERTENSION
     Dosage: DOSE INCREASED TO 300 MG IN FEB
     Dates: start: 20091201
  2. NORVASC [Suspect]
     Route: 048
  3. FISH OIL [Concomitant]
  4. VITAMIN D [Concomitant]
  5. HYDROCHLOROTHIAZIDE [Concomitant]

REACTIONS (7)
  - APHASIA [None]
  - BLOOD PRESSURE INCREASED [None]
  - CEREBRAL HAEMORRHAGE [None]
  - CEREBROVASCULAR ACCIDENT [None]
  - CONVULSION [None]
  - DRUG INEFFECTIVE [None]
  - INTRACRANIAL TUMOUR HAEMORRHAGE [None]
